FAERS Safety Report 4353553-6 (Version None)
Quarter: 2004Q2

REPORT INFORMATION
  Report Type: 
  Country: None (occurrence: None)
  Receive Date: 20040430
  Receipt Date: 20040416
  Transmission Date: 20050107
  Serious: Yes (Hospitalization)
  Sender: FDA-Public Use
  Company Number: 310001M04CAN

PATIENT
  Age: 39 Year
  Sex: Female
  Weight: 80 kg

DRUGS (3)
  1. GONAL-F [Suspect]
     Indication: INFERTILITY FEMALE
     Dosage: 300 IU, 1 IN 2 DAYS, SUBCUTANEOUS
     Route: 058
     Dates: start: 20040405, end: 20040407
  2. FOLLITROPIN BETA [Suspect]
     Indication: INFERTILITY FEMALE
     Dosage: 300 IU, 1 IN 2 DAYS, SUBCUTANEOUS
     Route: 058
     Dates: start: 20040401, end: 20040404
  3. BUSERELIN ACETATE [Concomitant]

REACTIONS (3)
  - NAUSEA [None]
  - SWELLING [None]
  - URTICARIA [None]
